FAERS Safety Report 4582471-3 (Version None)
Quarter: 2005Q1

REPORT INFORMATION
  Report Type: 
  Country: None (occurrence: None)
  Receive Date: 20050211
  Receipt Date: 20050211
  Transmission Date: 20050727
  Serious: No
  Sender: FDA-Public Use
  Company Number: None

PATIENT
  Sex: Female
  Weight: 63.5036 kg

DRUGS (3)
  1. COPAXONE [Suspect]
     Indication: MULTIPLE SCLEROSIS
     Dosage: 20 MG    DAILY    SUBCUTANEO
     Route: 058
     Dates: start: 20031217, end: 20040811
  2. FOSAMAX [Concomitant]
  3. TYLENOL (CAPLET) [Concomitant]

REACTIONS (2)
  - INJECTION SITE REACTION [None]
  - LIPODYSTROPHY ACQUIRED [None]
